FAERS Safety Report 8140702-7 (Version None)
Quarter: 2012Q1

REPORT INFORMATION
  Report Type: 
  Country: None (occurrence: None)
  Receive Date: 20120213
  Receipt Date: 20120213
  Transmission Date: 20120608
  Serious: Yes (Hospitalization)
  Sender: FDA-Public Use
  Company Number: None

PATIENT
  Sex: Female
  Weight: 89.3586 kg

DRUGS (4)
  1. PHENYTOIN [Suspect]
  2. CARBAMAZEPINE [Suspect]
  3. KEPPRA [Suspect]
  4. VALPROIC ACID [Suspect]

REACTIONS (7)
  - PYREXIA [None]
  - LEUKOPENIA [None]
  - RASH [None]
  - PRODUCT SUBSTITUTION ISSUE [None]
  - DRUG HYPERSENSITIVITY [None]
  - TRANSAMINASES INCREASED [None]
  - NAUSEA [None]
